FAERS Safety Report 10956537 (Version 1)
Quarter: 2015Q1

REPORT INFORMATION
  Report Type: Report from Study
  Country: CA (occurrence: None)
  Receive Date: 20150324
  Receipt Date: 20150324
  Transmission Date: 20150721
  Serious: Yes (Other)
  Sender: FDA-Public Use
  Company Number: 2787280

PATIENT
  Age: 63 Year
  Sex: Female

DRUGS (1)
  1. ZOLEDRONIC ACID [Suspect]
     Active Substance: ZOLEDRONIC ACID
     Indication: BREAST CANCER
     Dosage: (NOT OTHERWISE SPECIFIED)
     Route: 042

REACTIONS (10)
  - Diarrhoea [None]
  - Nausea [None]
  - Enamel anomaly [None]
  - Vomiting [None]
  - Cognitive disorder [None]
  - Tooth loss [None]
  - Tooth disorder [None]
  - Malaise [None]
  - Memory impairment [None]
  - Tooth fracture [None]
